FAERS Safety Report 6450907-9 (Version None)
Quarter: 2009Q4

REPORT INFORMATION
  Report Type: 
  Country: None (occurrence: None)
  Receive Date: 20091123
  Receipt Date: 20091113
  Transmission Date: 20100525
  Serious: Yes (Other)
  Sender: FDA-Public Use
  Company Number: MX-JNJFOC-20080900529

PATIENT
  Sex: Female
  Weight: 55 kg

DRUGS (16)
  1. GOLIMUMAB [Suspect]
     Route: 042
  2. GOLIMUMAB [Suspect]
     Route: 042
  3. GOLIMUMAB [Suspect]
     Route: 042
  4. GOLIMUMAB [Suspect]
     Route: 042
  5. GOLIMUMAB [Suspect]
     Route: 042
  6. GOLIMUMAB [Suspect]
     Indication: RHEUMATOID ARTHRITIS
     Route: 042
  7. METHOTREXATE [Suspect]
     Dosage: 6 CAPSULES
     Route: 048
  8. METHOTREXATE [Suspect]
     Indication: RHEUMATOID ARTHRITIS
     Dosage: 6 CAPSULES
     Route: 048
  9. PLACEBO [Suspect]
     Indication: RHEUMATOID ARTHRITIS
     Dosage: 6 CAPSULES
     Route: 048
  10. CALCITRIOL [Concomitant]
     Route: 048
  11. CALCIUM [Concomitant]
     Route: 048
  12. CELECOXIB [Concomitant]
     Indication: RHEUMATOID ARTHRITIS
     Route: 048
  13. FOLIC ACID [Concomitant]
     Indication: PROPHYLAXIS
     Route: 048
  14. ISONIAZID [Concomitant]
     Indication: PROPHYLAXIS
     Route: 048
  15. OMEPRAZOLE [Concomitant]
     Route: 048
  16. RISEDRONATE SODIUM [Concomitant]
     Route: 048

REACTIONS (1)
  - LYMPH NODE TUBERCULOSIS [None]
